FAERS Safety Report 18564778 (Version 4)
Quarter: 2021Q1

REPORT INFORMATION
  Report Type: Spontaneous
  Country: AU (occurrence: AU)
  Receive Date: 20201201
  Receipt Date: 20210128
  Transmission Date: 20210419
  Serious: Yes (Other)
  Sender: FDA-Public Use
  Company Number: AU-ASTRAZENECA-2020SF58026

PATIENT
  Age: 20105 Day
  Sex: Female
  Weight: 103.1 kg

DRUGS (10)
  1. FASENRA [Suspect]
     Active Substance: BENRALIZUMAB
     Indication: ASTHMA
     Dosage: 30.0MG UNKNOWN
     Route: 058
     Dates: start: 20200512, end: 20201027
  2. DYMISTA [Concomitant]
     Active Substance: AZELASTINE HYDROCHLORIDE\FLUTICASONE PROPIONATE
     Indication: RHINITIS
     Dosage: 125/50,UNKNOWN
     Route: 045
     Dates: start: 20180704
  3. VITAMIN D [Concomitant]
     Active Substance: VITAMIN D NOS
  4. SPIOLTO [Concomitant]
     Active Substance: OLODATEROL HYDROCHLORIDE\TIOTROPIUM BROMIDE MONOHYDRATE
     Indication: ASTHMA
     Route: 055
     Dates: start: 20180801
  5. OMALIZUMAB. [Concomitant]
     Active Substance: OMALIZUMAB
     Indication: ASTHMA
     Dates: start: 201804, end: 202004
  6. SOMAC [Concomitant]
     Active Substance: PANTOPRAZOLE SODIUM
     Indication: GASTROOESOPHAGEAL REFLUX DISEASE
     Route: 048
     Dates: start: 20170206
  7. NUROFEN [Concomitant]
     Active Substance: IBUPROFEN
  8. MONTELUKAST [Concomitant]
     Active Substance: MONTELUKAST SODIUM
  9. FLUTIFORM [Concomitant]
     Active Substance: FLUTICASONE PROPIONATE\FORMOTEROL FUMARATE
     Indication: ASTHMA
     Dosage: 250/10, UNKNOWN
     Route: 055
     Dates: start: 20180801
  10. PREDNISONE. [Concomitant]
     Active Substance: PREDNISONE
     Dosage: 125/50,UNKNOWN
     Route: 045
     Dates: start: 20180704

REACTIONS (13)
  - Central nervous system vasculitis [Unknown]
  - Eosinophilia [Recovering/Resolving]
  - Limb mass [Recovering/Resolving]
  - Eye disorder [Unknown]
  - Rash [Recovered/Resolved]
  - Headache [Recovered/Resolved]
  - Visual impairment [Recovered/Resolved]
  - Gait disturbance [Unknown]
  - Joint swelling [Recovered/Resolved]
  - Aura [Unknown]
  - Eosinophilic granulomatosis with polyangiitis [Recovering/Resolving]
  - Arthralgia [Recovering/Resolving]
  - Erythema [Recovering/Resolving]

NARRATIVE: CASE EVENT DATE: 20191015
